FAERS Safety Report 18925731 (Version 1)
Quarter: 2021Q1

REPORT INFORMATION
  Report Type: Spontaneous
  Country: FR (occurrence: FR)
  Receive Date: 20210223
  Receipt Date: 20210223
  Transmission Date: 20210420
  Serious: Yes (Hospitalization, Other)
  Sender: FDA-Public Use
  Company Number: FR-AUROBINDO-AUR-APL-2021-007473

PATIENT
  Age: 51 Year
  Sex: Female

DRUGS (4)
  1. ERBITUX [Suspect]
     Active Substance: CETUXIMAB
     Indication: COLORECTAL CANCER METASTATIC
     Dosage: 500 MG/M2 (2 WEEK)
     Route: 042
     Dates: start: 20170703
  2. 5?FU [Suspect]
     Active Substance: FLUOROURACIL
     Dosage: 2400 MG/M2 (NUMBER OF CYCLES PLANNED: 8)
     Route: 042
     Dates: start: 20170703
  3. IRINOTECAN SOLUTION FOR INFUSION [Suspect]
     Active Substance: IRINOTECAN
     Indication: COLORECTAL CANCER METASTATIC
     Dosage: 175 MG/M2 (NUMBER OF CYCLES PLANNED: 8)
     Route: 042
     Dates: start: 20170703
  4. 5?FU [Suspect]
     Active Substance: FLUOROURACIL
     Indication: COLORECTAL CANCER METASTATIC
     Dosage: 395 MG/M2
     Route: 040

REACTIONS (2)
  - Bacteraemia [Recovered/Resolved]
  - Off label use [Unknown]

NARRATIVE: CASE EVENT DATE: 20171020
